FAERS Safety Report 8365060-4 (Version None)
Quarter: 2012Q2

REPORT INFORMATION
  Report Type: 
  Country: None (occurrence: None)
  Receive Date: 20120516
  Receipt Date: 20120504
  Transmission Date: 20120825
  Serious: No
  Sender: FDA-Public Use
  Company Number: US-ASTRAZENECA-2012SE22993

PATIENT
  Age: 84 Year
  Sex: Female
  Weight: 68 kg

DRUGS (10)
  1. FUROSEMIDE [Concomitant]
     Indication: CARDIAC DISORDER
  2. LEVOTHYROXINE SODIUM [Concomitant]
     Indication: THYROID DISORDER
  3. PULMICORT FLEXHALER [Suspect]
     Indication: ASTHMA
     Route: 055
  4. PULMICORT FLEXHALER [Suspect]
     Dosage: 1 TO 2 INHALATIONS PER DAY OR SOMETIMES 4 INHALATIONS PER DAY
     Route: 055
  5. PRAVASTATIN [Concomitant]
     Indication: HYPERSENSITIVITY
  6. CALCIUM SUPPLEMENTS [Concomitant]
  7. SINGULAIR [Concomitant]
     Indication: HYPERSENSITIVITY
  8. CLONIDINE [Concomitant]
     Indication: CARDIAC DISORDER
  9. PRADAXA [Concomitant]
     Indication: CARDIAC DISORDER
  10. FLECAINIDE ACETATE [Concomitant]
     Indication: HEART RATE IRREGULAR

REACTIONS (4)
  - OFF LABEL USE [None]
  - HEART RATE IRREGULAR [None]
  - HEARING IMPAIRED [None]
  - CIRCUMSTANCE OR INFORMATION CAPABLE OF LEADING TO MEDICATION ERROR [None]
